FAERS Safety Report 6334711-8 (Version None)
Quarter: 2009Q3

REPORT INFORMATION
  Report Type: 
  Country: None (occurrence: None)
  Receive Date: 20090831
  Receipt Date: 20090820
  Transmission Date: 20100115
  Serious: Yes (Hospitalization, Disabling)
  Sender: FDA-Public Use
  Company Number: CA-ELI_LILLY_AND_COMPANY-CA200905002161

PATIENT
  Age: 71 Year
  Sex: Female

DRUGS (15)
  1. FORTEO [Suspect]
     Indication: OSTEOPOROSIS
     Dosage: 20 UG, DAILY (1/D)
     Route: 058
     Dates: start: 20080704
  2. METFORMIN HCL [Concomitant]
     Indication: TYPE 2 DIABETES MELLITUS
     Dosage: 500 MG, 2/D
  3. INDAPAMIDE [Concomitant]
     Indication: HYPERTENSION
     Dosage: 1.25 MG, 2/D
  4. PERINDOPRIL [Concomitant]
     Dosage: 2 MG, DAILY (1/D)
  5. ASPIRIN [Concomitant]
     Dosage: 81 MG, DAILY (1/D)
  6. ATORVASTATIN [Concomitant]
     Indication: HYPERLIPIDAEMIA
     Dosage: 20 MG, EACH EVENING
  7. DIAMICRON [Concomitant]
     Dosage: 60 MG, EACH MORNING
  8. CELEXA [Concomitant]
     Indication: DEPRESSION
     Dosage: 10 MG, EACH EVENING
  9. ARICEPT [Concomitant]
     Indication: DEMENTIA
     Dosage: 5 MG, EACH EVENING
  10. PARIET [Concomitant]
     Indication: GASTROOESOPHAGEAL REFLUX DISEASE
     Dosage: 20 MG, DAILY (1/D)
  11. VITAMIN D [Concomitant]
     Indication: SUPPLEMENTATION THERAPY
     Dosage: 2000 IU, DAILY (1/D)
  12. VITAMIN B-12 [Concomitant]
     Dosage: 1000 UG, DAILY (1/D)
  13. CALCIUM CITRATE [Concomitant]
     Indication: SUPPLEMENTATION THERAPY
  14. FERROUS GLUCONATE [Concomitant]
     Indication: ANAEMIA
  15. COUMADIN [Concomitant]
     Indication: HYPERTENSION
     Dosage: 2 MG, UNK

REACTIONS (4)
  - FALL [None]
  - HIP FRACTURE [None]
  - MOBILITY DECREASED [None]
  - MUSCULAR WEAKNESS [None]
